FAERS Safety Report 15338447 (Version 6)
Quarter: 2020Q3

REPORT INFORMATION
  Report Type: Spontaneous
  Country: DE (occurrence: DE)
  Receive Date: 20180831
  Receipt Date: 20200916
  Transmission Date: 20201102
  Serious: Yes (Disabling, Other)
  Sender: FDA-Public Use
  Company Number: DE-BRISTOL-MYERS SQUIBB COMPANY-BMS-2018-078832

PATIENT
  Age: 16 Year
  Sex: Male
  Weight: 71 kg

DRUGS (3)
  1. SPRYCEL [Suspect]
     Active Substance: DASATINIB
     Dosage: UNK
     Route: 065
     Dates: start: 20180907
  2. SPRYCEL [Suspect]
     Active Substance: DASATINIB
     Dosage: UNK
     Route: 065
  3. SPRYCEL [Suspect]
     Active Substance: DASATINIB
     Indication: CHRONIC MYELOID LEUKAEMIA
     Dosage: 100 MG, QD
     Route: 065
     Dates: start: 201705

REACTIONS (13)
  - Large intestine infection [Unknown]
  - Enterocolitis haemorrhagic [Unknown]
  - Paraesthesia [Unknown]
  - Procedural pain [Unknown]
  - Myopathy [Not Recovered/Not Resolved]
  - Malaise [Unknown]
  - Respiratory disorder [Recovered/Resolved]
  - Alopecia [Not Recovered/Not Resolved]
  - Lipase increased [Unknown]
  - Campylobacter gastroenteritis [Recovered/Resolved]
  - Depression [Recovering/Resolving]
  - Tinnitus [Recovered/Resolved]
  - Skin disorder [Recovering/Resolving]

NARRATIVE: CASE EVENT DATE: 201705
